FAERS Safety Report 6234564-2 (Version None)
Quarter: 2009Q2

REPORT INFORMATION
  Report Type: 
  Country: None (occurrence: None)
  Receive Date: 20090618
  Receipt Date: 20090611
  Transmission Date: 20091009
  Serious: Yes (Hospitalization)
  Sender: FDA-Public Use
  Company Number: US-ASTRAZENECA-2009UW14964

PATIENT
  Age: 27522 Day
  Sex: Female
  Weight: 99.8 kg

DRUGS (15)
  1. PRILOSEC [Suspect]
     Dosage: TWICE PER DAY
     Route: 048
  2. VALTREX [Suspect]
     Indication: HERPES ZOSTER
     Route: 048
     Dates: start: 20090407
  3. CALAMINE [Suspect]
     Indication: HERPES ZOSTER
     Dosage: APPLIED EVERY 2 HOURS FOR 2  TO 3 DAYS THEN TWICE DAILY
  4. BUMETANIDE [Concomitant]
     Route: 048
  5. ATENOLOL [Concomitant]
  6. SYNTHROID [Concomitant]
  7. ZOCOR [Concomitant]
  8. TRICOR [Concomitant]
  9. NIASPAN [Concomitant]
  10. NEURONTIN [Concomitant]
  11. PLAVIX [Concomitant]
  12. DETROL [Concomitant]
  13. COZAAR [Concomitant]
  14. METFORMIN HCL [Concomitant]
  15. ACTONEL [Concomitant]

REACTIONS (3)
  - CONFUSIONAL STATE [None]
  - DISORIENTATION [None]
  - METABOLIC DISORDER [None]
